FAERS Safety Report 7312428-0 (Version None)
Quarter: 2011Q1

REPORT INFORMATION
  Report Type: 
  Country: None (occurrence: None)
  Receive Date: 20110214
  Receipt Date: 20110127
  Transmission Date: 20110831
  Serious: Yes (Death, Hospitalization, Other)
  Sender: FDA-Public Use
  Company Number: 2010003077

PATIENT
  Age: 58 Year
  Sex: Male

DRUGS (9)
  1. PRIMPERAN (METOCLOPRAMIDE) (TABLET) [Concomitant]
  2. ERLOTINIB HYDROCHLORIDE [Suspect]
     Dosage: (150 MG,QD), ORAL
     Route: 048
     Dates: start: 20100608, end: 20100630
  3. SORAFENIB [Suspect]
     Dosage: (800 MG,QD (400MG BID)), ORAL
     Route: 048
     Dates: start: 20100608, end: 20100630
  4. TRAMADOL HYDROCHLOIRDE (TRAMADOL HYDROCHLOIRDE) [Concomitant]
  5. ALDACTONE [Concomitant]
  6. FOLIC ACID [Concomitant]
  7. HUMALOG [Concomitant]
  8. RAMIPRIL [Concomitant]
  9. IMODIUM [Concomitant]

REACTIONS (4)
  - GASTROINTESTINAL HAEMORRHAGE [None]
  - HAEMOGLOBIN DECREASED [None]
  - ENCEPHALOPATHY [None]
  - PROTHROMBIN TIME PROLONGED [None]
